FAERS Safety Report 16499677 (Version 2)
Quarter: 2019Q3

REPORT INFORMATION
  Report Type: Spontaneous
  Country: US (occurrence: US)
  Receive Date: 20190701
  Receipt Date: 20190905
  Transmission Date: 20191004
  Serious: Yes (Hospitalization)
  Sender: FDA-Public Use
  Company Number: US-BIOGEN-2019BI00755452

PATIENT
  Sex: Female

DRUGS (1)
  1. TYSABRI [Suspect]
     Active Substance: NATALIZUMAB
     Indication: MULTIPLE SCLEROSIS
     Route: 065
     Dates: start: 20120626

REACTIONS (5)
  - Gastroenteritis viral [Unknown]
  - Diarrhoea [Unknown]
  - Vomiting [Unknown]
  - Amnesia [Unknown]
  - Abdominal discomfort [Unknown]
